FAERS Safety Report 8382231-1 (Version None)
Quarter: 2012Q2

REPORT INFORMATION
  Report Type: 
  Country: None (occurrence: None)
  Receive Date: 20120524
  Receipt Date: 20120516
  Transmission Date: 20120825
  Serious: Yes (Hospitalization, Disabling, Other)
  Sender: FDA-Public Use
  Company Number: US-PFIZER INC-HQWYE686531AUG04

PATIENT
  Sex: Female
  Weight: 61.3 kg

DRUGS (1)
  1. PREMPRO [Suspect]
     Indication: HORMONE REPLACEMENT THERAPY
     Dosage: UNK
     Route: 048
     Dates: start: 19960301, end: 19960701

REACTIONS (2)
  - DEPRESSION [None]
  - CEREBROVASCULAR ACCIDENT [None]
